FAERS Safety Report 6701891-1 (Version None)
Quarter: 2010Q2

REPORT INFORMATION
  Report Type: 
  Country: None (occurrence: None)
  Receive Date: 20100427
  Receipt Date: 20100402
  Transmission Date: 20101027
  Serious: Yes (Other)
  Sender: FDA-Public Use
  Company Number: AUR-APL-2010-00810

PATIENT
  Age: 74 Year
  Sex: Male
  Weight: 83.9154 kg

DRUGS (13)
  1. CEFUROXIME [Suspect]
     Indication: SINUSITIS
     Dosage: 500MG BID
     Dates: start: 20100305
  2. LIPITOR [Suspect]
     Indication: CARDIAC DISORDER
     Dosage: 20 MG, DAILY
  3. COZAAR [Concomitant]
  4. FLOMAX [Concomitant]
  5. LANOXIN [Concomitant]
  6. NEXIUM [Concomitant]
  7. TRILIPIX [Concomitant]
  8. WARFARIN SODIUM [Concomitant]
  9. GABAPENTIN [Concomitant]
  10. JANUVIA [Concomitant]
  11. NORVASC [Concomitant]
  12. ANGROGEL GEL [Concomitant]
  13. NASONEX [Concomitant]

REACTIONS (6)
  - AORTIC VALVE REPLACEMENT [None]
  - CORONARY ARTERY BYPASS [None]
  - DRUG INTERACTION [None]
  - GAIT DISTURBANCE [None]
  - PAIN IN EXTREMITY [None]
  - SINUSITIS [None]
